FAERS Safety Report 16527904 (Version 1)
Quarter: 2019Q3

REPORT INFORMATION
  Report Type: Spontaneous
  Country: US (occurrence: US)
  Receive Date: 20190703
  Receipt Date: 20190703
  Transmission Date: 20191004
  Serious: No
  Sender: FDA-Public Use
  Company Number: US-MYLANLABS-2019M1055279

PATIENT
  Sex: Male
  Weight: 95 kg

DRUGS (8)
  1. BABY ASPIRIN [Concomitant]
     Active Substance: ASPIRIN
  2. VITAMIN C [Concomitant]
     Active Substance: ASCORBIC ACID
  3. ALPRAZOLAM. [Concomitant]
     Active Substance: ALPRAZOLAM
  4. WARFARIN [Concomitant]
     Active Substance: WARFARIN
  5. VITAMIN B12 [Concomitant]
     Active Substance: CYANOCOBALAMIN
  6. MUSE [Suspect]
     Active Substance: ALPROSTADIL
     Indication: ERECTILE DYSFUNCTION
     Dosage: 250 MICROGRAM
     Route: 066
     Dates: start: 201906
  7. METOPROLOL TARTRATE. [Concomitant]
     Active Substance: METOPROLOL TARTRATE
  8. MULTI VITAMIN                      /08408501/ [Concomitant]
     Active Substance: VITAMINS

REACTIONS (2)
  - Product packaging quantity issue [Unknown]
  - Drug ineffective [Recovering/Resolving]
